FAERS Safety Report 6582569-4 (Version None)
Quarter: 2010Q1

REPORT INFORMATION
  Report Type: 
  Country: None (occurrence: None)
  Receive Date: 20100216
  Receipt Date: 20100208
  Transmission Date: 20100710
  Serious: Yes (Death)
  Sender: FDA-Public Use
  Company Number: GB-MILLENNIUM PHARMACEUTICALS, INC.-2010-00947

PATIENT

DRUGS (6)
  1. VELCADE [Suspect]
     Indication: MULTIPLE MYELOMA
     Dosage: 2 MG, CYCLIC
     Route: 040
     Dates: start: 20090907, end: 20091126
  2. OXYCONTIN [Concomitant]
     Indication: PAIN
     Dosage: 20 MG, BID
  3. FUROSEMIDE [Concomitant]
     Indication: INAPPROPRIATE ANTIDIURETIC HORMONE SECRETION
     Dosage: 40 MG, QD
  4. SLOW SODIUM [Concomitant]
     Indication: INAPPROPRIATE ANTIDIURETIC HORMONE SECRETION
     Dosage: 1 DF, TID
  5. DEXAMETHASONE [Concomitant]
     Indication: MULTIPLE MYELOMA
     Dosage: 20 MG, QD
  6. OMEPRAZOLE [Concomitant]
     Dosage: 20 MG, QD

REACTIONS (2)
  - DRUG INEFFECTIVE [None]
  - MULTIPLE MYELOMA [None]
